FAERS Safety Report 5094011-3 (Version None)
Quarter: 2006Q3

REPORT INFORMATION
  Report Type: 
  Country: None (occurrence: None)
  Receive Date: 20060728
  Receipt Date: 20060626
  Transmission Date: 20061208
  Serious: No
  Sender: FDA-Public Use
  Company Number: 254523

PATIENT
  Age: 29 Year
  Sex: Male
  Weight: 81.6 kg

DRUGS (2)
  1. LEVEMIR [Suspect]
     Indication: DIABETES MELLITUS INSULIN-DEPENDENT
     Dosage: 50 IU, QD, SUBCUTANEOUS
     Route: 058
     Dates: start: 20060619
  2. NOVOLIN R (INSULIN HUMAN) SOLUTION FOR INJECTION [Concomitant]

REACTIONS (4)
  - ABDOMINAL PAIN UPPER [None]
  - DIZZINESS [None]
  - NAUSEA [None]
  - NERVOUSNESS [None]
